FAERS Safety Report 10656716 (Version 1)
Quarter: 2014Q4

REPORT INFORMATION
  Report Type: Spontaneous
  Country: RS (occurrence: RS)
  Receive Date: 20141217
  Receipt Date: 20141217
  Transmission Date: 20150529
  Serious: Yes (Hospitalization)
  Sender: FDA-Public Use
  Company Number: PHHY2014RS162764

PATIENT
  Age: 6 Year
  Sex: Female

DRUGS (2)
  1. BENZYLPENICILLIN [Suspect]
     Active Substance: PENICILLIN G
     Indication: UPPER RESPIRATORY TRACT INFECTION
     Route: 030
  2. CEFTRIAXONE. [Suspect]
     Active Substance: CEFTRIAXONE
     Indication: UPPER RESPIRATORY TRACT INFECTION
     Route: 051

REACTIONS (16)
  - Pyrexia [Recovered/Resolved]
  - Oral mucosa erosion [Recovered/Resolved]
  - Myalgia [Recovered/Resolved]
  - Malaise [Recovered/Resolved]
  - Body temperature increased [Recovered/Resolved]
  - Leukocytosis [Recovered/Resolved]
  - Skin lesion [Recovered/Resolved]
  - Blister [Recovered/Resolved]
  - Ocular hyperaemia [Recovered/Resolved]
  - Fatigue [Recovered/Resolved]
  - Skin erosion [Recovered/Resolved]
  - Toxic epidermal necrolysis [Recovered/Resolved]
  - Nikolsky^s sign [Recovered/Resolved]
  - Post inflammatory pigmentation change [Recovered/Resolved]
  - Rash macular [Recovered/Resolved]
  - Arthralgia [Recovered/Resolved]
